FAERS Safety Report 10670187 (Version 4)
Quarter: 2015Q1

REPORT INFORMATION
  Report Type: Spontaneous
  Country: CO (occurrence: CO)
  Receive Date: 20141223
  Receipt Date: 20150228
  Transmission Date: 20150720
  Serious: Yes (Other)
  Sender: FDA-Public Use
  Company Number: CO-BIOGENIDEC-2014BI132855

PATIENT
  Age: 49 Year
  Sex: Female

DRUGS (5)
  1. TYSABRI [Suspect]
     Active Substance: NATALIZUMAB
     Indication: GAIT DISTURBANCE
     Route: 042
     Dates: start: 20110223
  2. TYSABRI [Suspect]
     Active Substance: NATALIZUMAB
     Indication: SECONDARY PROGRESSIVE MULTIPLE SCLEROSIS
     Route: 042
     Dates: start: 20110223
  3. FAMPRIDINE [Concomitant]
     Active Substance: DALFAMPRIDINE
     Indication: GAIT DISTURBANCE
     Route: 048
     Dates: start: 201406, end: 20150203
  4. ACETAMINOPHEN. [Concomitant]
     Active Substance: ACETAMINOPHEN
     Indication: HEADACHE
     Route: 048
     Dates: start: 2005
  5. PRIMIDONE. [Concomitant]
     Active Substance: PRIMIDONE
     Indication: TREMOR
     Route: 048
     Dates: start: 201401, end: 201407

REACTIONS (11)
  - Pruritus [Unknown]
  - Headache [Unknown]
  - Skin papilloma [Not Recovered/Not Resolved]
  - Erythema [Unknown]
  - Product use issue [Unknown]
  - Dry skin [Unknown]
  - Pain [Unknown]
  - Rash [Unknown]
  - Urinary tract infection [Unknown]
  - Febrile convulsion [Unknown]
  - Tachycardia [Unknown]

NARRATIVE: CASE EVENT DATE: 2014
